FAERS Safety Report 5840537-1 (Version None)
Quarter: 2008Q3

REPORT INFORMATION
  Report Type: 
  Country: None (occurrence: None)
  Receive Date: 20080807
  Receipt Date: 20080724
  Transmission Date: 20090109
  Serious: Yes (Other)
  Sender: FDA-Public Use
  Company Number: 2008BI014963

PATIENT
  Age: 37 Year
  Sex: Male
  Weight: 95.2554 kg

DRUGS (2)
  1. TYSABRI [Suspect]
     Indication: MULTIPLE SCLEROSIS
     Dosage: 300 MG; QM; IV
     Route: 042
     Dates: start: 20080507, end: 20080609
  2. AVONEX (CON.) [Concomitant]

REACTIONS (10)
  - ASTHENIA [None]
  - CHEST DISCOMFORT [None]
  - CONVULSION [None]
  - DRUG HYPERSENSITIVITY [None]
  - ESCHERICHIA URINARY TRACT INFECTION [None]
  - HEADACHE [None]
  - HYPERHIDROSIS [None]
  - PALLOR [None]
  - SINUS TACHYCARDIA [None]
  - VOMITING [None]
